FAERS Safety Report 21725024 (Version 3)
Quarter: 2023Q1

REPORT INFORMATION
  Report Type: Report from Study
  Country: BR (occurrence: BR)
  Receive Date: 20221214
  Receipt Date: 20230316
  Transmission Date: 20230417
  Serious: Yes (Other)
  Sender: FDA-Public Use
  Company Number: BR-CELLTRION INC.-2022BR020932

PATIENT

DRUGS (5)
  1. INFLIXIMAB [Suspect]
     Active Substance: INFLIXIMAB
     Indication: Crohn^s disease
     Dosage: 5 AMPOULES EVERY 8 WEEKS
     Route: 042
     Dates: start: 20220919
  2. INFLIXIMAB [Suspect]
     Active Substance: INFLIXIMAB
     Dosage: 5 AMPOULES EVERY 8 WEEKS
     Route: 042
     Dates: start: 20230209
  3. INFLIXIMAB [Suspect]
     Active Substance: INFLIXIMAB
     Dosage: 6 VIALS EVERY 8 WEEKS
     Route: 042
  4. DIENOGEST [Concomitant]
     Active Substance: DIENOGEST
     Indication: Contraception
     Dosage: 1 PILL A DAY, 5 YEARS AGO
     Route: 048
  5. Esio [Concomitant]
     Indication: Gastritis
     Dosage: 1 PILL A DAY, 6 MONTHS AGO
     Route: 048

REACTIONS (6)
  - Crohn^s disease [Unknown]
  - Intestinal ulcer [Unknown]
  - COVID-19 [Unknown]
  - Swelling [Unknown]
  - Therapeutic product effect decreased [Unknown]
  - Intentional dose omission [Unknown]

NARRATIVE: CASE EVENT DATE: 20221205
